FAERS Safety Report 10199026 (Version 1)
Quarter: 2014Q2

REPORT INFORMATION
  Report Type: Spontaneous
  Country: US (occurrence: US)
  Receive Date: 20140527
  Receipt Date: 20140527
  Transmission Date: 20141212
  Serious: Yes (Death, Hospitalization)
  Sender: FDA-Public Use
  Company Number: US-B.I. PHARMACEUTICALS,INC./RIDGEFIELD-2014-BI-23187BP

PATIENT
  Sex: Female

DRUGS (1)
  1. PRADAXA [Suspect]
     Indication: PRODUCT USED FOR UNKNOWN INDICATION
     Route: 065
     Dates: start: 20110726, end: 20110922

REACTIONS (5)
  - Subdural haematoma [Fatal]
  - Cephalhaematoma [Fatal]
  - Haemorrhage intracranial [Fatal]
  - Fall [Unknown]
  - Laceration [Unknown]
